FAERS Safety Report 9474200 (Version 2)
Quarter: 2013Q3

REPORT INFORMATION
  Report Type: Spontaneous
  Country: US (occurrence: US)
  Receive Date: 20130823
  Receipt Date: 20130830
  Transmission Date: 20140515
  Serious: No
  Sender: FDA-Public Use
  Company Number: US-AMGEN-USASP2013058336

PATIENT
  Age: 67 Year
  Sex: Female

DRUGS (5)
  1. PROLIA [Suspect]
     Indication: OSTEOPOROSIS POSTMENOPAUSAL
     Dosage: 60 MG, Q6MO
     Route: 058
     Dates: start: 20130618, end: 20130618
  2. NEXIUM                             /01479302/ [Concomitant]
     Indication: GASTROOESOPHAGEAL REFLUX DISEASE
     Dosage: 20 MG, QD
     Route: 048
  3. PREMARIN [Concomitant]
     Indication: HORMONE REPLACEMENT THERAPY
     Dosage: 0.3 G, QD
     Route: 048
  4. PROGESTERONE [Concomitant]
     Indication: HORMONE REPLACEMENT THERAPY
     Dosage: 100 G, QD
     Route: 048
  5. RESTASIS [Concomitant]
     Indication: DRY EYE
     Dosage: UNK UNK, BID
     Route: 031

REACTIONS (5)
  - Skin atrophy [Unknown]
  - Skin injury [Unknown]
  - Diarrhoea [Not Recovered/Not Resolved]
  - Insomnia [Unknown]
  - Back pain [Unknown]
